FAERS Safety Report 5583097-5 (Version None)
Quarter: 2007Q4

REPORT INFORMATION
  Report Type: 
  Country: None (occurrence: None)
  Receive Date: 20071231
  Receipt Date: 20071215
  Transmission Date: 20080405
  Serious: No
  Sender: FDA-Public Use
  Company Number: ENT 2007-0196

PATIENT
  Age: 66 Year
  Sex: Male

DRUGS (8)
  1. COMTAN [Suspect]
     Indication: PARKINSON'S DISEASE
     Dosage: 300 MG ORAL
     Route: 048
     Dates: start: 20070809, end: 20070920
  2. BI-SIFROL (PRAMIPEXOLE) [Suspect]
     Indication: PARKINSON'S DISEASE
     Dosage: 7.0 TO 10.5 MG ORAL, 3.5 MG ORAL
     Route: 048
     Dates: start: 20070809
  3. BI-SIFROL (PRAMIPEXOLE) [Suspect]
     Indication: PARKINSON'S DISEASE
     Dosage: 7.0 TO 10.5 MG ORAL, 3.5 MG ORAL
     Route: 048
     Dates: start: 20070809
  4. SYMMETREL [Concomitant]
  5. MADOPAR [Concomitant]
  6. FP (SELEGILINE) [Concomitant]
  7. CABERGOLINE [Concomitant]
  8. ZONISAMIDE [Concomitant]

REACTIONS (4)
  - ANTI-HBS ANTIBODY POSITIVE [None]
  - HEPATIC CYST [None]
  - HEPATITIS [None]
  - RENAL CYST [None]
